FAERS Safety Report 21425735 (Version 1)
Quarter: 2022Q4

REPORT INFORMATION
  Report Type: Spontaneous
  Country: US (occurrence: US)
  Receive Date: 20221008
  Receipt Date: 20221008
  Transmission Date: 20230113
  Serious: No
  Sender: FDA-Public Use
  Company Number: US-MICRO LABS LIMITED-ML2022-04785

PATIENT
  Age: 65 Year
  Sex: Male
  Weight: 104.33 kg

DRUGS (3)
  1. TRAVOPROST [Suspect]
     Active Substance: TRAVOPROST
     Indication: Glaucoma
     Dosage: ONE DROP IN EACH EYE AT NIGHT BEFORE BEDTIME
  2. TIMOLOL. [Concomitant]
     Indication: Glaucoma
     Dosage: DURING THE DAY
  3. TRAVATAN [Concomitant]
     Active Substance: TRAVOPROST
     Indication: Glaucoma
     Dosage: AT NIGHT

REACTIONS (2)
  - Incorrect dose administered [Unknown]
  - Product delivery mechanism issue [Unknown]
